FAERS Safety Report 4399755-4 (Version None)
Quarter: 2004Q3

REPORT INFORMATION
  Report Type: 
  Country: None (occurrence: None)
  Receive Date: 20040714
  Receipt Date: 20040628
  Transmission Date: 20050211
  Serious: Yes (Hospitalization)
  Sender: FDA-Public Use
  Company Number: T04-GER-02230-01

PATIENT
  Age: 72 Year
  Sex: Male

DRUGS (13)
  1. CIPRALEX (ESCITALOPRAM) [Suspect]
     Indication: DEPRESSION
     Dosage: 20 MG QD PO
     Route: 048
     Dates: start: 20040127
  2. CIPRALEX (ESCITALOPRAM) [Suspect]
     Indication: SOMATISATION DISORDER
     Dosage: 20 MG QD PO
     Route: 048
     Dates: start: 20040127
  3. CIPRALEX (ESCITALOPRAM) [Suspect]
     Indication: DEPRESSION
     Dosage: 10 MG QD PO
     Route: 048
     Dates: start: 20040105, end: 20040126
  4. CIPRALEX (ESCITALOPRAM) [Suspect]
     Indication: SOMATISATION DISORDER
     Dosage: 10 MG QD PO
     Route: 048
     Dates: start: 20040105, end: 20040126
  5. HYDROCHLOROTHIAZIDE [Suspect]
  6. RAMIPRIL [Concomitant]
  7. CARVEDILOL [Concomitant]
  8. AMIODARONE HCL [Concomitant]
  9. TRIAMTEREN (TRIAMTERENE) [Concomitant]
  10. OMNIC (TAMSULOSIN HYDROCHLORIDE) [Concomitant]
  11. ALLOPURINOL [Concomitant]
  12. ZOCOR (SIMVASTATIN) (SIMVASTATIN) [Concomitant]
  13. ASS (ACETYLSALICYLIC ACID) (ACETYLSALICYLIC ACID) [Concomitant]

REACTIONS (18)
  - ABNORMAL BEHAVIOUR [None]
  - APATHY [None]
  - BLADDER DIVERTICULUM [None]
  - CONDITION AGGRAVATED [None]
  - CYSTITIS [None]
  - CYSTOSCOPY ABNORMAL [None]
  - DEHYDRATION [None]
  - DEMENTIA [None]
  - DEPRESSION [None]
  - DRUG INEFFECTIVE [None]
  - FEELING ABNORMAL [None]
  - HAEMATURIA [None]
  - HAEMOGLOBIN DECREASED [None]
  - IRRITABILITY [None]
  - MEMORY IMPAIRMENT [None]
  - PYELONEPHRITIS ACUTE [None]
  - STUPOR [None]
  - VASODILATATION [None]
